FAERS Safety Report 10010622 (Version 2)
Quarter: 2014Q1

REPORT INFORMATION
  Report Type: Spontaneous
  Country: BR (occurrence: BR)
  Receive Date: 20140314
  Receipt Date: 20140321
  Transmission Date: 20141002
  Serious: Yes (Other)
  Sender: FDA-Public Use
  Company Number: BR-AMGEN-BRASP2014018138

PATIENT
  Age: 67 Year
  Sex: Male
  Weight: 108 kg

DRUGS (2)
  1. ENBREL [Suspect]
     Indication: PSORIASIS
     Dosage: 50 MG, ONCE WEEKLY
     Route: 065
     Dates: start: 201208
  2. ENBREL [Suspect]
     Dosage: UNK
     Route: 065

REACTIONS (2)
  - Hernia [Unknown]
  - Prostatic disorder [Unknown]
